FAERS Safety Report 18149561 (Version 1)
Quarter: 2020Q3

REPORT INFORMATION
  Report Type: Spontaneous
  Country: US (occurrence: US)
  Receive Date: 20200814
  Receipt Date: 20200814
  Transmission Date: 20201103
  Serious: No
  Sender: FDA-Public Use
  Company Number: US-ELI_LILLY_AND_COMPANY-US202007007186

PATIENT
  Sex: Female

DRUGS (1)
  1. BASAGLAR [Suspect]
     Active Substance: INSULIN GLARGINE
     Indication: TYPE 2 DIABETES MELLITUS
     Dosage: 26 U, BID
     Route: 058

REACTIONS (6)
  - Muscle spasms [Unknown]
  - Inappropriate schedule of product administration [Unknown]
  - Blood glucose decreased [Unknown]
  - Blood cholesterol increased [Unknown]
  - Blood glucose increased [Recovered/Resolved]
  - Product storage error [Unknown]
